FAERS Safety Report 15901673 (Version 1)
Quarter: 2019Q1

REPORT INFORMATION
  Report Type: Report from Study
  Country: US (occurrence: US)
  Receive Date: 20190201
  Receipt Date: 20190201
  Transmission Date: 20190417
  Serious: Yes (Hospitalization)
  Sender: FDA-Public Use
  Company Number: US-ACTELION-A-NJ2019-184808

PATIENT
  Age: 76 Year
  Sex: Male
  Weight: 64.85 kg

DRUGS (19)
  1. LEVOTHYROXINE. [Concomitant]
     Active Substance: LEVOTHYROXINE
     Dosage: 2 MG, QD
     Dates: start: 201808
  2. INCRUSE ELLIPTA [Concomitant]
     Active Substance: UMECLIDINIUM BROMIDE
     Dosage: UNK MG, QD
     Route: 055
     Dates: start: 2018
  3. OMEPRAZOLE. [Concomitant]
     Active Substance: OMEPRAZOLE
     Dosage: 40 MG, QD
  4. LEVEMIR [Concomitant]
     Active Substance: INSULIN DETEMIR
     Dosage: 5 MCG, QD AT BEDTIME
     Dates: start: 2018
  5. LASIX [Concomitant]
     Active Substance: FUROSEMIDE
     Dosage: 60 MG AM, 40 MG PM
     Dates: start: 2018
  6. ONGLYZA [Concomitant]
     Active Substance: SAXAGLIPTIN HYDROCHLORIDE
     Dosage: 5 MG, QD
  7. ADCIRCA [Concomitant]
     Active Substance: TADALAFIL
     Dosage: 40 MG, QD
     Dates: start: 2018
  8. GLIPIZIDE XL [Concomitant]
     Active Substance: GLIPIZIDE
     Dosage: 5 MG, QD
  9. OPSUMIT [Suspect]
     Active Substance: MACITENTAN
     Indication: PULMONARY ARTERIAL HYPERTENSION
     Dosage: 10 MG, QD
     Route: 048
     Dates: start: 201810, end: 201812
  10. HUMALOG [Concomitant]
     Active Substance: INSULIN LISPRO
     Dosage: 5 MCG, QD AT DINNER
  11. IRBESARTAN. [Concomitant]
     Active Substance: IRBESARTAN
     Dosage: 75 MG, QD
     Dates: start: 2002
  12. TACT [Concomitant]
     Active Substance: DIPHENHYDRAMINE HYDROCHLORIDE\LEVOMENTHOL
     Dosage: 3 TABS, BID
     Dates: start: 2016
  13. METOPROLOL. [Concomitant]
     Active Substance: METOPROLOL
     Dosage: 5 MG, BID
     Dates: start: 2002
  14. ZETIA [Concomitant]
     Active Substance: EZETIMIBE
     Dosage: 10 MG, QD
  15. METFORMIN [Concomitant]
     Active Substance: METFORMIN HYDROCHLORIDE
     Dosage: 1000 MG, BID
  16. REPAGLINIDE. [Concomitant]
     Active Substance: REPAGLINIDE
     Dosage: 2 MG, BID
     Dates: start: 201807
  17. SIMVASTATIN. [Concomitant]
     Active Substance: SIMVASTATIN
     Dosage: 10 MG, QD
  18. POTASSIUM CHLORIDE. [Concomitant]
     Active Substance: POTASSIUM CHLORIDE
     Dosage: 20 MEQ, QD
     Dates: start: 2018
  19. LUPRON [Concomitant]
     Active Substance: LEUPROLIDE ACETATE
     Dosage: UNK, Q 3 MONTHS
     Dates: start: 2016

REACTIONS (6)
  - Asthenia [Recovered/Resolved]
  - Adverse event [Unknown]
  - Haemoglobin decreased [Recovered/Resolved]
  - Gait inability [Recovered/Resolved]
  - Transfusion [Unknown]
  - Headache [Recovering/Resolving]

NARRATIVE: CASE EVENT DATE: 20181205
